FAERS Safety Report 8880758 (Version 1)
Quarter: 2012Q4

REPORT INFORMATION
  Report Type: 
  Country: GB (occurrence: GB)
  Receive Date: 20121101
  Receipt Date: 20121101
  Transmission Date: 20130627
  Serious: Yes (Disabling)
  Sender: FDA-Public Use
  Company Number: GB-GLAXOSMITHKLINE-B0839604A

PATIENT
  Age: 44 Year
  Sex: Male
  Weight: 102.8 kg

DRUGS (1)
  1. AVAMYS [Suspect]

REACTIONS (1)
  - Palpitations [Recovered/Resolved]
